FAERS Safety Report 6400775-6 (Version None)
Quarter: 2009Q4

REPORT INFORMATION
  Report Type: 
  Country: None (occurrence: None)
  Receive Date: 20091008
  Receipt Date: 20090928
  Transmission Date: 20100525
  Serious: Yes (Hospitalization)
  Sender: FDA-Public Use
  Company Number: GP-09-09-0014

PATIENT
  Age: 48 Year
  Sex: Male

DRUGS (3)
  1. TOPIRAMATE [Suspect]
     Indication: EPILEPSY
     Dosage: 100 MG TWICE DAILY
  2. POSACONAZOLE [Suspect]
     Indication: ASPERGILLOMA
     Dosage: 200 MG 4 TIMES DAILY
  3. VALPROATE SODIUM [Concomitant]

REACTIONS (5)
  - DECREASED APPETITE [None]
  - DRUG LEVEL INCREASED [None]
  - SOMNOLENCE [None]
  - STUPOR [None]
  - WEIGHT DECREASED [None]
